FAERS Safety Report 9644272 (Version 4)
Quarter: 2013Q4

REPORT INFORMATION
  Report Type: Other
  Country: GB (occurrence: GB)
  Receive Date: 20131025
  Receipt Date: 20131220
  Transmission Date: 20140711
  Serious: Yes (Death, Hospitalization, Other)
  Sender: FDA-Public Use
  Company Number: GB-LUPIN PHARMACEUTICALS INC.-E2B_00000713

PATIENT
  Age: 87 Year
  Sex: Male
  Weight: 68 kg

DRUGS (7)
  1. SIMVASTATIN [Suspect]
     Indication: HYPERCHOLESTEROLAEMIA
     Route: 048
     Dates: end: 2012
  2. SIMVASTATIN [Suspect]
     Route: 048
     Dates: start: 20130211, end: 20130218
  3. CLARITHROMYCIN [Interacting]
     Indication: OSTEOMYELITIS
     Route: 048
     Dates: start: 20121101, end: 20130211
  4. FUSIDIC ACID [Suspect]
     Indication: OSTEOMYELITIS
     Route: 048
     Dates: start: 20121220, end: 20130211
  5. LANSOPRAZOLE [Suspect]
     Indication: PRODUCT USED FOR UNKNOWN INDICATION
     Route: 065
  6. ASPIRIN [Concomitant]
     Indication: PRODUCT USED FOR UNKNOWN INDICATION
     Route: 065
  7. INSULIN GLARGINE [Concomitant]
     Indication: PRODUCT USED FOR UNKNOWN INDICATION
     Route: 065

REACTIONS (6)
  - Sepsis [Fatal]
  - Renal failure acute [Fatal]
  - Rhabdomyolysis [Fatal]
  - Medication error [Not Recovered/Not Resolved]
  - Incorrect drug administration duration [Unknown]
  - Drug interaction [Unknown]
